FAERS Safety Report 11069559 (Version 4)
Quarter: 2016Q1

REPORT INFORMATION
  Report Type: Report from Study
  Country: ZA (occurrence: ZA)
  Receive Date: 20150427
  Receipt Date: 20160122
  Transmission Date: 20160525
  Serious: Yes (Hospitalization, Other)
  Sender: FDA-Public Use
  Company Number: ZA-GLAXOSMITHKLINE-ZA2015052158

PATIENT
  Age: 51 Year
  Sex: Male
  Weight: 107 kg

DRUGS (3)
  1. ZYBAN [Suspect]
     Active Substance: BUPROPION HYDROCHLORIDE
     Indication: EX-TOBACCO USER
     Route: 048
     Dates: start: 20150405, end: 20150407
  2. NITROCINE [Concomitant]
     Indication: CHEST PAIN
     Route: 042
     Dates: start: 20150408, end: 20150408
  3. GW856553 [Suspect]
     Active Substance: LOSMAPIMOD
     Indication: ACUTE CORONARY SYNDROME
     Dosage: UNK, BID
     Route: 048
     Dates: start: 20150320

REACTIONS (1)
  - Angina pectoris [Recovered/Resolved]

NARRATIVE: CASE EVENT DATE: 20150407
